FAERS Safety Report 12901109 (Version 9)
Quarter: 2017Q3

REPORT INFORMATION
  Report Type: Spontaneous
  Country: US (occurrence: US)
  Receive Date: 20161101
  Receipt Date: 20170914
  Transmission Date: 20171127
  Serious: Yes (Congenital Anomaly, Other)
  Sender: FDA-Public Use
  Company Number: PHEH2016US028047

PATIENT
  Sex: Female

DRUGS (1)
  1. ZOFRAN [Suspect]
     Active Substance: ONDANSETRON HYDROCHLORIDE
     Indication: FOETAL EXPOSURE DURING PREGNANCY
     Route: 064

REACTIONS (29)
  - Foetal exposure during pregnancy [Unknown]
  - Right ventricular dilatation [Unknown]
  - Low birth weight baby [Unknown]
  - Premature baby [Unknown]
  - Right ventricular hypertrophy [Unknown]
  - Fever neonatal [Unknown]
  - Electrolyte imbalance [Unknown]
  - Cytogenetic abnormality [Unknown]
  - Failure to thrive [Unknown]
  - Anaemia neonatal [Unknown]
  - Foetal growth restriction [Unknown]
  - Malnutrition [Unknown]
  - Atrial septal defect [Unknown]
  - Bronchopulmonary dysplasia [Unknown]
  - Injury [Unknown]
  - Tricuspid valve incompetence [Unknown]
  - Neonatal respiratory failure [Unknown]
  - Gastrooesophageal reflux disease [Unknown]
  - Poor weight gain neonatal [Unknown]
  - Feeding disorder [Unknown]
  - Anomalous pulmonary venous connection [Unknown]
  - Congenital pulmonary hypertension [Unknown]
  - Neonatal respiratory distress syndrome [Unknown]
  - Acidosis [Unknown]
  - Heart disease congenital [Unknown]
  - Ventricular septal defect [Unknown]
  - Patent ductus arteriosus [Unknown]
  - Pleural effusion [Unknown]
  - Dermatitis diaper [Unknown]
